FAERS Safety Report 20265587 (Version 2)
Quarter: 2022Q1

REPORT INFORMATION
  Report Type: Report from Study
  Country: CO (occurrence: CO)
  Receive Date: 20211231
  Receipt Date: 20220124
  Transmission Date: 20220423
  Serious: Yes (Hospitalization, Other)
  Sender: FDA-Public Use
  Company Number: CO-NOVARTISPH-NVSC2021CO299940

PATIENT
  Sex: Female
  Weight: 11.4 kg

DRUGS (9)
  1. ILARIS [Suspect]
     Active Substance: CANAKINUMAB
     Indication: Still^s disease
     Dosage: 80 MG, QMO
     Route: 058
     Dates: start: 202107, end: 20211125
  2. DESLORATADINE [Suspect]
     Active Substance: DESLORATADINE
     Indication: Rhinitis allergic
     Dosage: 3 MG, QD(STARTED SINCE A YEAR AGO)
     Route: 048
  3. METHOTREXATE [Concomitant]
     Active Substance: METHOTREXATE
     Indication: Arthritis
     Dosage: 7.5 MG, QW(YEAR AND A HALF)
     Route: 048
  4. IBUPROFEN [Concomitant]
     Active Substance: IBUPROFEN
     Indication: Pain
     Dosage: 3 CM,PRN(5 MONTH)
     Route: 048
  5. PREDNISOLONE [Concomitant]
     Active Substance: PREDNISOLONE
     Indication: Arthritis
     Dosage: 4 MG, QD (STARTED YEAR AND A)
     Route: 048
  6. FOLIC ACID [Concomitant]
     Active Substance: FOLIC ACID
     Indication: Product used for unknown indication
     Dosage: 1 MG, QD
     Route: 048
  7. CALCIUM [Concomitant]
     Active Substance: CALCIUM
     Indication: Supplementation therapy
     Dosage: 0.5 DOSAGE FORM, QD
     Route: 048
  8. MOMETASONE [Concomitant]
     Active Substance: MOMETASONE
     Indication: Rhinitis allergic
     Dosage: 1 PUFF EACH NOSTRIL
     Route: 065
  9. VITAMINS [Concomitant]
     Active Substance: VITAMINS
     Indication: Malnutrition
     Dosage: UNK
     Route: 065

REACTIONS (5)
  - Respiratory tract infection [Unknown]
  - Influenza [Unknown]
  - Cough [Unknown]
  - Lung opacity [Unknown]
  - Incorrect dose administered [Unknown]
